FAERS Safety Report 24236180 (Version 2)
Quarter: 2024Q3

REPORT INFORMATION
  Report Type: Spontaneous
  Country: US (occurrence: US)
  Receive Date: 20240822
  Receipt Date: 20240831
  Transmission Date: 20241017
  Serious: No
  Sender: ABBVIE
  Company Number: US-ABBVIE-5878875

PATIENT

DRUGS (1)
  1. SYNTHROID [Suspect]
     Active Substance: LEVOTHYROXINE SODIUM
     Indication: Product used for unknown indication
     Dosage: 75 MICROGRAM
     Route: 048
     Dates: start: 2021

REACTIONS (1)
  - Nail injury [Recovered/Resolved]
